FAERS Safety Report 7909885-5 (Version None)
Quarter: 2011Q4

REPORT INFORMATION
  Report Type: 
  Country: None (occurrence: None)
  Receive Date: 20111111
  Receipt Date: 20111102
  Transmission Date: 20120403
  Serious: Yes (Other)
  Sender: FDA-Public Use
  Company Number: US-JNJFOC-20111101065

PATIENT
  Sex: Male
  Weight: 83.92 kg

DRUGS (4)
  1. OMEPRAZOLE [Concomitant]
     Indication: GASTRIC DISORDER
  2. BALSALAZIDE DISODIUM [Concomitant]
     Indication: COLITIS ULCERATIVE
     Dates: start: 20101001
  3. REMICADE [Suspect]
     Indication: COLITIS ULCERATIVE
     Route: 042
     Dates: start: 20110301
  4. VITAMIN D [Concomitant]
     Indication: MEDICAL DIET

REACTIONS (10)
  - COLITIS [None]
  - DRUG INEFFECTIVE [None]
  - FEELING ABNORMAL [None]
  - VOMITING [None]
  - HAND FRACTURE [None]
  - DIARRHOEA [None]
  - DRUG HYPERSENSITIVITY [None]
  - BLOOD MAGNESIUM DECREASED [None]
  - BLOOD POTASSIUM DECREASED [None]
  - FATIGUE [None]
